FAERS Safety Report 24811524 (Version 1)
Quarter: 2025Q1

REPORT INFORMATION
  Report Type: Spontaneous
  Country: US (occurrence: US)
  Receive Date: 20250106
  Receipt Date: 20250106
  Transmission Date: 20250408
  Serious: No
  Sender: BLUEPRINT MEDICINES
  Company Number: US-Blueprint Medicines Corporation-2025-AER-00004

PATIENT
  Age: 64 Year
  Sex: Male

DRUGS (1)
  1. AYVAKIT [Suspect]
     Active Substance: AVAPRITINIB
     Indication: Gastrointestinal stromal tumour
     Route: 065
     Dates: start: 202411

REACTIONS (4)
  - Renal function test abnormal [Unknown]
  - Hepatic enzyme abnormal [Unknown]
  - Blood potassium decreased [Unknown]
  - Eye swelling [Unknown]

NARRATIVE: CASE EVENT DATE: 20241223
